FAERS Safety Report 6874303-5 (Version None)
Quarter: 2010Q3

REPORT INFORMATION
  Report Type: 
  Country: None (occurrence: None)
  Receive Date: 20100723
  Receipt Date: 20090706
  Transmission Date: 20110219
  Serious: Yes (Other)
  Sender: FDA-Public Use
  Company Number: US-PFIZER INC-2009201999

PATIENT
  Sex: Male
  Weight: 108.8 kg

DRUGS (3)
  1. CHANTIX [Suspect]
     Indication: SMOKING CESSATION THERAPY
     Dosage: UNK
     Dates: start: 20090201, end: 20090101
  2. TRICOR [Concomitant]
     Indication: HYPERCHOLESTEROLAEMIA
     Dosage: UNK
  3. LIPITOR [Concomitant]
     Indication: HYPERCHOLESTEROLAEMIA
     Dosage: UNK

REACTIONS (5)
  - AGITATION [None]
  - DEPRESSION [None]
  - MOOD ALTERED [None]
  - NIGHTMARE [None]
  - SUICIDAL IDEATION [None]
